FAERS Safety Report 6383196-4 (Version None)
Quarter: 2009Q3

REPORT INFORMATION
  Report Type: 
  Country: None (occurrence: None)
  Receive Date: 20090929
  Receipt Date: 20090921
  Transmission Date: 20100115
  Serious: Yes (Hospitalization, Other)
  Sender: FDA-Public Use
  Company Number: TPA2009A02807

PATIENT
  Age: 71 Year
  Sex: Female
  Weight: 99.7913 kg

DRUGS (11)
  1. ULORIC [Suspect]
     Indication: GOUT
     Dosage: 80 MG, 1 IN 1 D, PER ORAL
     Route: 048
     Dates: start: 20090818, end: 20090916
  2. PREDNISONE (PREDMISONE) [Suspect]
     Indication: GOUT
     Dosage: 10MG - 40MG DAILY, AS NEEDED, PER ORAL
     Route: 048
     Dates: start: 20090818, end: 20090916
  3. HUMALOG [Concomitant]
  4. BUMEX [Concomitant]
  5. COUMADIN [Concomitant]
  6. LISINOPRIL [Concomitant]
  7. COREG [Concomitant]
  8. LANTUS [Concomitant]
  9. ALDACTONE [Concomitant]
  10. CHOLESTYRAMINE LITE (ALL OTHER THERAPEUTIC PRODUCTS) [Concomitant]
  11. HEMOGLOBIN INJECTION (ALL OTHER THERAPUTIC PRODUCTS) [Concomitant]

REACTIONS (6)
  - ASTHENIA [None]
  - GASTROINTESTINAL ULCER HAEMORRHAGE [None]
  - HAEMOGLOBIN DECREASED [None]
  - PROTHROMBIN TIME PROLONGED [None]
  - RECTAL HAEMORRHAGE [None]
  - TROPONIN INCREASED [None]
